FAERS Safety Report 5797299-6 (Version None)
Quarter: 2008Q2

REPORT INFORMATION
  Report Type: 
  Country: None (occurrence: None)
  Receive Date: 20080627
  Receipt Date: 20080617
  Transmission Date: 20081010
  Serious: Yes (Hospitalization)
  Sender: FDA-Public Use
  Company Number: 2008-177473-NL

PATIENT
  Age: 69 Year
  Sex: Female

DRUGS (7)
  1. ROCURONIUM BROMIDE [Suspect]
     Indication: GENERAL ANAESTHESIA
     Dosage: 40 MG ONCE INTRAVENOUS (NOS)
     Route: 042
     Dates: start: 20080510, end: 20080510
  2. CLONIDINE [Concomitant]
  3. SUFENTANIL CITRATE [Concomitant]
  4. PROPOFOL [Concomitant]
  5. DICLOFENAC POTASSIUM [Concomitant]
  6. ACETAMINOPHEN [Concomitant]
  7. DESFLURANE [Concomitant]

REACTIONS (5)
  - APNOEA [None]
  - DRUG INEFFECTIVE [None]
  - HYPERHIDROSIS [None]
  - HYPERTENSION [None]
  - TACHYCARDIA [None]
